FAERS Safety Report 6231838-6 (Version None)
Quarter: 2009Q2

REPORT INFORMATION
  Report Type: 
  Country: None (occurrence: None)
  Receive Date: 20090612
  Receipt Date: 20090612
  Transmission Date: 20091009
  Serious: Yes (Other)
  Sender: FDA-Public Use
  Company Number: None

PATIENT
  Sex: Female
  Weight: 65.7716 kg

DRUGS (1)
  1. AMBIEN [Suspect]
     Indication: INSOMNIA
     Dosage: LOWEST DOSE DISPENSED @ HOSP. ONCE DAILY PO
     Route: 048
     Dates: start: 20090605, end: 20090606

REACTIONS (3)
  - DELUSION [None]
  - HALLUCINATION [None]
  - SOMNAMBULISM [None]
